FAERS Safety Report 23408622 (Version 1)
Quarter: 2024Q1

REPORT INFORMATION
  Report Type: Spontaneous
  Country: US (occurrence: US)
  Receive Date: 20240117
  Receipt Date: 20240117
  Transmission Date: 20240410
  Serious: Yes (Hospitalization)
  Sender: FDA-Public Use
  Company Number: US-BRISTOL-MYERS SQUIBB COMPANY-2024-007678

PATIENT
  Age: 69 Year
  Sex: Female

DRUGS (2)
  1. SPRYCEL [Suspect]
     Active Substance: DASATINIB
     Indication: Chronic myeloid leukaemia
     Dosage: FREQUENCY=TAKE 1 TABLET BY MOUTH 5 TIMES A WEEK ON WEEKDAYS ONLY AT THE SAME TIME. DO NOT TAKE ON SA
     Route: 048
     Dates: start: 202110
  2. ARANESP [Concomitant]
     Active Substance: DARBEPOETIN ALFA
     Indication: Product used for unknown indication
     Dosage: PF SYR

REACTIONS (2)
  - Hospitalisation [Unknown]
  - Off label use [Unknown]
